FAERS Safety Report 10363042 (Version 1)
Quarter: 2014Q3

REPORT INFORMATION
  Report Type: Spontaneous
  Country: US (occurrence: US)
  Receive Date: 20140805
  Receipt Date: 20140805
  Transmission Date: 20150326
  Serious: Yes (Hospitalization, Other)
  Sender: FDA-Public Use
  Company Number: US-PAR PHARMACEUTICAL, INC-2014SCPR009309

PATIENT

DRUGS (4)
  1. ADRENALIN [Suspect]
     Active Substance: EPINEPHRINE
     Dosage: 0.01 MG/KG, UNK, TWO DOSES
     Route: 042
  2. ADRENALIN [Suspect]
     Active Substance: EPINEPHRINE
     Indication: ANAPHYLACTIC REACTION
     Dosage: 0.01 MG/KG, SINGLE
     Route: 030
  3. EPINEPHRINE. [Suspect]
     Active Substance: EPINEPHRINE
     Indication: RESPIRATORY DISTRESS
     Dosage: UNK, UNKNOWN NEBULIZATION OVER A PERIOD OF 20 MINUTES
  4. ADRENALIN [Suspect]
     Active Substance: EPINEPHRINE
     Dosage: UNK, 1 MCG/KG/MIN
     Route: 041

REACTIONS (8)
  - Respiratory distress [None]
  - Pulmonary oedema [Recovering/Resolving]
  - Sinus tachycardia [None]
  - Poor peripheral circulation [None]
  - Hypotension [None]
  - Condition aggravated [None]
  - Cardiomyopathy [Recovering/Resolving]
  - Left ventricular dysfunction [None]
